FAERS Safety Report 8348362-7 (Version None)
Quarter: 2012Q2

REPORT INFORMATION
  Report Type: 
  Country: None (occurrence: None)
  Receive Date: 20120507
  Receipt Date: 20120426
  Transmission Date: 20120825
  Serious: Yes (Hospitalization)
  Sender: FDA-Public Use
  Company Number: ABR_00455_2012

PATIENT
  Age: 3 Year
  Sex: Male

DRUGS (4)
  1. ERYTHROMYCIN [Suspect]
     Indication: RESPIRATORY TRACT INFECTION
  2. ERYTHROMYCIN [Suspect]
     Indication: PYREXIA
  3. IBUPROFEN [Suspect]
     Indication: RESPIRATORY DISORDER
     Dosage: ([SUSPENSION])
  4. IBUPROFEN [Suspect]
     Indication: PYREXIA
     Dosage: ([SUSPENSION])

REACTIONS (2)
  - STAPHYLOCOCCAL SCALDED SKIN SYNDROME [None]
  - ACUTE GENERALISED EXANTHEMATOUS PUSTULOSIS [None]
